FAERS Safety Report 23753254 (Version 1)
Quarter: 2024Q2

REPORT INFORMATION
  Report Type: Spontaneous
  Country: US (occurrence: None)
  Receive Date: 20240417
  Receipt Date: 20240417
  Transmission Date: 20240716
  Serious: Yes (Other)
  Sender: FDA-Public Use
  Company Number: None

PATIENT
  Age: 61 Year
  Sex: Female
  Weight: 124.65 kg

DRUGS (15)
  1. BUPRENORPHINE [Suspect]
     Active Substance: BUPRENORPHINE
     Indication: Pain
     Dosage: 1 PATCH EVERY 7 DAYS TOPICAL ?
     Route: 061
     Dates: start: 20240301, end: 20240417
  2. HYDROXYCHLOROQUINE [Concomitant]
  3. SULFASALAZINE [Concomitant]
  4. SYNTHROID [Concomitant]
     Active Substance: LEVOTHYROXINE SODIUM
  5. CEVIMELINE [Concomitant]
     Active Substance: CEVIMELINE
  6. VERAPAMIL [Concomitant]
  7. ESTRADIOL [Concomitant]
     Active Substance: ESTRADIOL
  8. SPIRONOLACTONE [Concomitant]
     Active Substance: SPIRONOLACTONE
  9. BACLOFEN [Concomitant]
     Active Substance: BACLOFEN
  10. MELOXICAM [Concomitant]
  11. aimovig [Concomitant]
  12. ONDANSETRON [Concomitant]
     Active Substance: ONDANSETRON
  13. dickofebac [Concomitant]
  14. SODIUM [Concomitant]
     Active Substance: SODIUM
  15. TYLENOL [Concomitant]
     Active Substance: ACETAMINOPHEN

REACTIONS (2)
  - Rash [None]
  - Burning sensation [None]

NARRATIVE: CASE EVENT DATE: 20240417
